FAERS Safety Report 8840572 (Version 2)
Quarter: 2012Q4

REPORT INFORMATION
  Report Type: 
  Country: MX (occurrence: MX)
  Receive Date: 20121015
  Receipt Date: 20121129
  Transmission Date: 20130627
  Serious: Yes (Other)
  Sender: FDA-Public Use
  Company Number: MX-BAXTER-2012BAX019627

PATIENT
  Age: 49 Year
  Sex: Male
  Weight: 62 kg

DRUGS (7)
  1. DIANEAL [Suspect]
     Indication: PERITONEAL DIALYSIS
     Route: 033
     Dates: end: 20120922
  2. DIANEAL [Suspect]
     Route: 033
     Dates: start: 20120922
  3. DIANEAL [Suspect]
     Route: 033
  4. DIANEAL [Suspect]
     Indication: PERITONEAL DIALYSIS
     Route: 033
     Dates: end: 20120922
  5. DIANEAL [Suspect]
     Route: 033
  6. INSULIN [Concomitant]
     Indication: DIABETES MELLITUS
     Dosage: 24IU- 32IU
     Route: 033
  7. AMLODIPINE [Concomitant]
     Indication: HYPERTENSION
     Route: 048

REACTIONS (5)
  - Syncope [Recovered/Resolved]
  - Oedema peripheral [Recovering/Resolving]
  - Localised oedema [Recovered/Resolved]
  - Eyelid oedema [Recovered/Resolved]
  - Pruritus [Recovered/Resolved]
